FAERS Safety Report 8528990-6 (Version None)
Quarter: 2012Q3

REPORT INFORMATION
  Report Type: 
  Country: None (occurrence: None)
  Receive Date: 20120723
  Receipt Date: 20120711
  Transmission Date: 20120928
  Serious: Yes (Death, Congenital Anomaly, Other)
  Sender: FDA-Public Use
  Company Number: GB-ACCORD-014101

PATIENT

DRUGS (1)
  1. QUETIAPINE FUMARATE [Suspect]
     Dosage: INTERVAL: 1 TOTAL
     Route: 064
     Dates: start: 20111022

REACTIONS (3)
  - CONGENITAL ANOMALY [None]
  - FOETAL DEATH [None]
  - FOETAL EXPOSURE DURING PREGNANCY [None]
